FAERS Safety Report 7945579-8 (Version None)
Quarter: 2011Q4

REPORT INFORMATION
  Report Type: 
  Country: None (occurrence: None)
  Receive Date: 20111129
  Receipt Date: 20111121
  Transmission Date: 20120403
  Serious: Yes (Hospitalization)
  Sender: FDA-Public Use
  Company Number: US-SANOFI-AVENTIS-2011SA076397

PATIENT
  Age: 59 Year
  Sex: Female
  Weight: 81.6 kg

DRUGS (10)
  1. NORVASC [Concomitant]
     Dates: start: 20100713
  2. LANTUS [Concomitant]
     Dosage: DOSE:300 UNIT(S)
     Dates: start: 20061106
  3. DYAZIDE [Concomitant]
     Dates: start: 20100310
  4. METFORMIN HCL [Concomitant]
     Dates: start: 20061106
  5. CARDEVILOL [Concomitant]
     Dates: start: 20090608
  6. CILOSTAZOL [Concomitant]
     Dates: start: 20100713
  7. PLAVIX [Suspect]
     Indication: ANTIPLATELET THERAPY
     Dates: start: 20100505
  8. PRAVACHOL [Concomitant]
     Dates: start: 20040823
  9. ASPIRIN [Concomitant]
     Dates: start: 20070222
  10. LISINOPRIL [Concomitant]
     Dates: start: 20100310

REACTIONS (2)
  - FATIGUE [None]
  - CORONARY ARTERY OCCLUSION [None]
